FAERS Safety Report 10221451 (Version 11)
Quarter: 2014Q4

REPORT INFORMATION
  Report Type: Spontaneous
  Country: US (occurrence: US)
  Receive Date: 20140606
  Receipt Date: 20141015
  Transmission Date: 20150528
  Serious: Yes (Hospitalization)
  Sender: FDA-Public Use
  Company Number: US-ACTELION-A-US2014-94215

PATIENT
  Age: 73 Year
  Sex: Female

DRUGS (13)
  1. REVATIO [Concomitant]
     Active Substance: SILDENAFIL CITRATE
  2. XANAX [Concomitant]
     Active Substance: ALPRAZOLAM
  3. COUMADIN [Concomitant]
     Active Substance: WARFARIN SODIUM
  4. DIGOXIN. [Concomitant]
     Active Substance: DIGOXIN
     Dosage: UNK
  5. METOLAZONE. [Concomitant]
     Active Substance: METOLAZONE
  6. PREMARIN [Concomitant]
     Active Substance: ESTROGENS, CONJUGATED
  7. LINACLOTIDE [Concomitant]
     Active Substance: LINACLOTIDE
  8. COREG [Concomitant]
     Active Substance: CARVEDILOL
     Dosage: UNK
  9. VALTREX [Concomitant]
     Active Substance: VALACYCLOVIR HYDROCHLORIDE
  10. RIOCIGUAT [Concomitant]
     Active Substance: RIOCIGUAT
     Dosage: 1 MG, UNK
  11. OPSUMIT [Suspect]
     Active Substance: MACITENTAN
     Indication: PULMONARY ARTERIAL HYPERTENSION
     Dosage: 10 MG, QD
     Route: 048
     Dates: start: 20131203
  12. MYLANTA [Concomitant]
     Active Substance: ALUMINUM HYDROXIDE\MAGNESIUM HYDROXIDE\SIMETHICONE
  13. LASIX [Concomitant]
     Active Substance: FUROSEMIDE

REACTIONS (29)
  - Haematochezia [Recovering/Resolving]
  - Weight increased [Recovering/Resolving]
  - Constipation [Recovering/Resolving]
  - Fatigue [Recovering/Resolving]
  - Asthenia [Recovering/Resolving]
  - Vision blurred [Recovering/Resolving]
  - Onychoclasis [Recovering/Resolving]
  - Depression [Recovering/Resolving]
  - Malaise [Recovering/Resolving]
  - Painful respiration [Unknown]
  - Headache [Recovering/Resolving]
  - Dry skin [Recovering/Resolving]
  - Gait disturbance [Recovering/Resolving]
  - Dizziness [Unknown]
  - Cardiac resynchronisation therapy [Unknown]
  - Rectal haemorrhage [Recovering/Resolving]
  - Pericardial effusion [Unknown]
  - Oedema [Recovering/Resolving]
  - Abdominal pain upper [Unknown]
  - Anxiety [Recovering/Resolving]
  - Muscle spasms [Unknown]
  - Abdominal distension [Recovering/Resolving]
  - Blood pressure decreased [Unknown]
  - Fluid retention [Recovering/Resolving]
  - Dyspnoea [Unknown]
  - Dyspepsia [Unknown]
  - Memory impairment [Recovering/Resolving]
  - Disturbance in attention [Recovering/Resolving]
  - Nausea [Recovering/Resolving]

NARRATIVE: CASE EVENT DATE: 20131215
